FAERS Safety Report 6936028-7 (Version None)
Quarter: 2010Q3

REPORT INFORMATION
  Report Type: 
  Country: None (occurrence: None)
  Receive Date: 20100823
  Receipt Date: 20090828
  Transmission Date: 20110219
  Serious: Yes (Other)
  Sender: FDA-Public Use
  Company Number: US-KINGPHARMUSA00001-K200901067

PATIENT
  Age: 82 Year
  Sex: Female

DRUGS (4)
  1. SEPTRA [Suspect]
     Indication: VAGINAL INFECTION
     Dosage: BID
     Route: 048
     Dates: start: 20090819, end: 20090826
  2. VITAMINS [Concomitant]
     Dosage: UNK
  3. ALTACE [Concomitant]
     Indication: HYPERTENSION
     Dosage: UNK
  4. LIPITOR [Concomitant]
     Indication: BLOOD CHOLESTEROL INCREASED
     Dosage: UNK

REACTIONS (1)
  - ERYTHEMA MULTIFORME [None]
